FAERS Safety Report 20469956 (Version 1)
Quarter: 2022Q1

REPORT INFORMATION
  Report Type: Spontaneous
  Country: US (occurrence: None)
  Receive Date: 20220212
  Receipt Date: 20220212
  Transmission Date: 20220424
  Serious: No
  Sender: FDA-Public Use
  Company Number: None

PATIENT
  Age: 43 Year
  Sex: Female

DRUGS (1)
  1. FOLLISTIM AQ [Suspect]
     Active Substance: FOLLITROPIN
     Dosage: FREQUENCY : DAILY;?
     Route: 058
     Dates: start: 20220210

REACTIONS (2)
  - Needle issue [None]
  - Wrong technique in device usage process [None]

NARRATIVE: CASE EVENT DATE: 20220211
